FAERS Safety Report 24346475 (Version 1)
Quarter: 2024Q3

REPORT INFORMATION
  Report Type: Spontaneous
  Country: US (occurrence: US)
  Receive Date: 20240921
  Receipt Date: 20240921
  Transmission Date: 20241016
  Serious: No
  Sender: AUROBINDO
  Company Number: US-AUROBINDO-AUR-APL-2024-028727

PATIENT
  Age: 75 Year
  Sex: Female
  Weight: 88.9 kg

DRUGS (12)
  1. ALENDRONATE SODIUM [Suspect]
     Active Substance: ALENDRONATE SODIUM
     Indication: Osteoporosis
     Dosage: UNK, EVERY WEEK, (MAY 17TH) (DIRECTIONS WERE TO TAKE IT ON EVERY FRIDAY)
     Route: 048
  2. ALENDRONATE SODIUM [Suspect]
     Active Substance: ALENDRONATE SODIUM
     Dosage: UNK, EVERY WEEK (MAY 24TH) (DIRECTIONS WERE TO TAKE IT ON EVERY FRIDAY)
     Route: 048
  3. ALENDRONATE SODIUM [Suspect]
     Active Substance: ALENDRONATE SODIUM
     Dosage: UNK, EVERY WEEK (JUN 7TH) (DIRECTIONS WERE TO TAKE IT ON EVERY FRIDAY)
     Route: 048
  4. AMLODIPINE [Concomitant]
     Active Substance: AMLODIPINE BESYLATE
     Indication: Product used for unknown indication
     Dosage: UNK, ONCE A DAY
     Route: 065
  5. CYCLOBENZAPRINE [Concomitant]
     Active Substance: CYCLOBENZAPRINE
     Indication: Product used for unknown indication
     Dosage: UNK, ONCE A DAY
     Route: 065
  6. GABAPENTIN [Concomitant]
     Active Substance: GABAPENTIN
     Indication: Product used for unknown indication
     Dosage: UNK, TWO TIMES A DAY
     Route: 065
  7. IRBESARTAN [Concomitant]
     Active Substance: IRBESARTAN
     Indication: Product used for unknown indication
     Dosage: UNK, TWO TIMES A DAY
     Route: 065
  8. METFORMIN [Concomitant]
     Active Substance: METFORMIN HYDROCHLORIDE
     Indication: Product used for unknown indication
     Dosage: UNK, ONCE A DAY
     Route: 065
  9. METOPROLOL [Concomitant]
     Active Substance: METOPROLOL
     Indication: Product used for unknown indication
     Dosage: UNK, ONCE A DAY
     Route: 065
  10. LORAZEPAM [Concomitant]
     Active Substance: LORAZEPAM
     Indication: Product used for unknown indication
     Dosage: UNK, ONCE A DAY
     Route: 065
  11. UNSPECIFIED INGREDIENT [Concomitant]
     Active Substance: UNSPECIFIED INGREDIENT
     Indication: Product used for unknown indication
     Dosage: UNK, ONCE A DAY
     Route: 065
  12. UNSPECIFIED INGREDIENT [Concomitant]
     Active Substance: UNSPECIFIED INGREDIENT
     Indication: Product used for unknown indication
     Dosage: UNK, ONCE A DAY
     Route: 065

REACTIONS (8)
  - Swelling of eyelid [Recovered/Resolved]
  - Pharyngeal swelling [Recovered/Resolved]
  - Back pain [Recovered/Resolved]
  - Pain in extremity [Recovered/Resolved]
  - Enlarged clitoris [Recovered/Resolved]
  - Urethritis noninfective [Recovered/Resolved]
  - Diarrhoea [Recovered/Resolved]
  - Lip pain [Recovered/Resolved]
